FAERS Safety Report 7988693-3 (Version None)
Quarter: 2011Q4

REPORT INFORMATION
  Report Type: 
  Country: None (occurrence: None)
  Receive Date: 20111218
  Receipt Date: 20111214
  Transmission Date: 20120403
  Serious: Yes (Death, Hospitalization)
  Sender: FDA-Public Use
  Company Number: AU-ELI_LILLY_AND_COMPANY-AU201112003559

PATIENT
  Age: 90 Year
  Sex: Female

DRUGS (2)
  1. CYMBALTA [Suspect]
     Dosage: 30 MG, UNK
  2. OXYCONTIN [Concomitant]

REACTIONS (3)
  - DEATH [None]
  - BLOOD PRESSURE INCREASED [None]
  - HOSPITALISATION [None]
